FAERS Safety Report 24758347 (Version 1)
Quarter: 2024Q4

REPORT INFORMATION
  Report Type: Spontaneous
  Country: CN (occurrence: CN)
  Receive Date: 20241220
  Receipt Date: 20241220
  Transmission Date: 20250115
  Serious: Yes (Hospitalization, Other)
  Sender: BIO-THERA SOLUTIONS, LTD.
  Company Number: CN-Bio-Thera Solutions, Ltd.-2167482

PATIENT
  Age: 55 Year
  Sex: Female
  Weight: 53 kg

DRUGS (3)
  1. AVZIVI [Suspect]
     Active Substance: BEVACIZUMAB-TNJN
     Indication: Colon cancer stage IV
     Dates: start: 20241108, end: 20241108
  2. OXALIPLATIN [Suspect]
     Active Substance: OXALIPLATIN
     Dates: start: 20241108, end: 20241108
  3. CAPECITABINE [Suspect]
     Active Substance: CAPECITABINE
     Dates: start: 20241108, end: 20241121

REACTIONS (3)
  - Gingival bleeding [Not Recovered/Not Resolved]
  - Hepatic function abnormal [Not Recovered/Not Resolved]
  - Myelosuppression [Not Recovered/Not Resolved]

NARRATIVE: CASE EVENT DATE: 20241110
